FAERS Safety Report 25826820 (Version 2)
Quarter: 2025Q4

REPORT INFORMATION
  Report Type: Spontaneous
  Country: US (occurrence: US)
  Receive Date: 20250920
  Receipt Date: 20251016
  Transmission Date: 20260117
  Serious: No
  Sender: TOLMAR
  Company Number: US-Tolmar-TLM-2025-06285

PATIENT

DRUGS (2)
  1. ELIGARD [Suspect]
     Active Substance: LEUPROLIDE ACETATE
     Indication: Prostate cancer
     Dosage: EXP DATE: 30-SEP-2026; OCT-2026; SEP-2026?SN: 5735391350818?GTIN FROM BOX. 00362935461500
     Dates: start: 20250821
  2. DEVICE [Suspect]
     Active Substance: DEVICE
     Indication: Prostate cancer
     Dosage: EXP DATE: 30-SEP-2026; OCT-2026; SEP-2026?SN: 5735391350818?GTIN FROM BOX. 00362935461500

REACTIONS (3)
  - Intercepted product preparation error [Unknown]
  - Device use issue [Unknown]
  - Product preparation error [Unknown]

NARRATIVE: CASE EVENT DATE: 20250821
